FAERS Safety Report 23696907 (Version 1)
Quarter: 2024Q2

REPORT INFORMATION
  Report Type: Spontaneous
  Country: PT (occurrence: PT)
  Receive Date: 20240402
  Receipt Date: 20240402
  Transmission Date: 20240716
  Serious: Yes (Hospitalization)
  Sender: FDA-Public Use
  Company Number: PT-GTI-000208

PATIENT
  Age: 53 Year
  Sex: Male

DRUGS (2)
  1. PREDNISONE [Suspect]
     Active Substance: PREDNISONE
     Indication: Arthralgia
     Route: 065
  2. PREDNISONE [Suspect]
     Active Substance: PREDNISONE
     Indication: Seronegative arthritis
     Route: 065

REACTIONS (4)
  - Disease recurrence [Recovered/Resolved]
  - Arthralgia [Recovered/Resolved]
  - Pericardial effusion [Recovered/Resolved]
  - Seronegative arthritis [Recovered/Resolved]
